FAERS Safety Report 5385087-4 (Version None)
Quarter: 2007Q3

REPORT INFORMATION
  Report Type: 
  Country: None (occurrence: None)
  Receive Date: 20070710
  Receipt Date: 20070710
  Transmission Date: 20080115
  Serious: No
  Sender: FDA-Public Use
  Company Number: None

PATIENT
  Sex: Female
  Weight: 83.9 kg

DRUGS (8)
  1. CARBOPLATIN [Suspect]
     Indication: BREAST CANCER METASTATIC
     Dosage: 2 ANC WEEKLY - 1X IV
     Route: 042
     Dates: start: 20070626
  2. CETUXIMAB [Suspect]
     Indication: BREAST CANCER METASTATIC
     Dosage: 400MG/M2 WEEKLY - 1X IV
     Route: 042
     Dates: start: 20070626
  3. LYMPHEDEMA PUMP [Concomitant]
  4. DIPHENHYDRAMINE HCL [Concomitant]
  5. CIPROFLOXACIN [Concomitant]
  6. ZOFRAN [Concomitant]
  7. OXYCONTIN [Concomitant]
  8. OXYCODONE HCL [Concomitant]

REACTIONS (7)
  - CONSTIPATION [None]
  - DEHYDRATION [None]
  - EYE DISCHARGE [None]
  - EYE IRRITATION [None]
  - NAUSEA [None]
  - PHARYNGOLARYNGEAL PAIN [None]
  - VOMITING [None]
